FAERS Safety Report 24313547 (Version 1)
Quarter: 2024Q3

REPORT INFORMATION
  Report Type: Spontaneous
  Country: US (occurrence: CN)
  Receive Date: 20240912
  Receipt Date: 20240912
  Transmission Date: 20241016
  Serious: Yes (Other)
  Sender: JIANGSU HENGRUI MEDICINE
  Company Number: CN-Jiangsu Hengrui Medicine Co., Ltd.-2161496

PATIENT
  Age: 72 Year
  Sex: Male

DRUGS (5)
  1. CYCLOPHOSPHAMIDE [Suspect]
     Active Substance: CYCLOPHOSPHAMIDE
     Indication: Prophylaxis against graft versus host disease
  2. THIOTEPA [Suspect]
     Active Substance: THIOTEPA
  3. PREDNISONE [Suspect]
     Active Substance: PREDNISONE
     Route: 048
  4. BUSULFAN [Suspect]
     Active Substance: BUSULFAN
  5. FLUDARABINE [Suspect]
     Active Substance: FLUDARABINE PHOSPHATE

REACTIONS (2)
  - Meningitis enterococcal [Recovering/Resolving]
  - Product use in unapproved indication [Unknown]
